FAERS Safety Report 4450659-8 (Version None)
Quarter: 2004Q3

REPORT INFORMATION
  Report Type: 
  Country: None (occurrence: None)
  Receive Date: 20040914
  Receipt Date: 20040830
  Transmission Date: 20050211
  Serious: Yes (Hospitalization, Other)
  Sender: FDA-Public Use
  Company Number: 2004045515

PATIENT
  Age: 73 Year
  Sex: Female
  Weight: 65.7716 kg

DRUGS (1)
  1. LIPITOR [Suspect]
     Indication: BLOOD CHOLESTEROL INCREASED
     Dosage: 10 MG (10 MG,1 IN 1 D), ORAL
     Route: 048
     Dates: end: 20040601

REACTIONS (7)
  - ALDOLASE DECREASED [None]
  - ARTHRITIS [None]
  - INSOMNIA [None]
  - KNEE ARTHROPLASTY [None]
  - MUSCLE ATROPHY [None]
  - MUSCULAR WEAKNESS [None]
  - MYALGIA [None]
